FAERS Safety Report 8773087 (Version 1)
Quarter: 2012Q4

REPORT INFORMATION
  Report Type: 
  Country: TR (occurrence: TR)
  Receive Date: 20120907
  Receipt Date: 20120907
  Transmission Date: 20130627
  Serious: Yes (Hospitalization)
  Sender: FDA-Public Use
  Company Number: PHHY2012TR075394

PATIENT
  Age: 70 Year
  Sex: Female

DRUGS (1)
  1. CEFTRIAXONE [Suspect]
     Indication: PYELONEPHRITIS ACUTE
     Dosage: 1 g, QD

REACTIONS (8)
  - Acute generalised exanthematous pustulosis [Recovering/Resolving]
  - Hypotension [Recovering/Resolving]
  - Tachycardia [Recovering/Resolving]
  - Tachypnoea [Recovering/Resolving]
  - Pyrexia [Recovering/Resolving]
  - Generalised erythema [Recovering/Resolving]
  - Rash pustular [Recovering/Resolving]
  - Confusional state [Recovering/Resolving]
